FAERS Safety Report 9663437 (Version 2)
Quarter: 2014Q1

REPORT INFORMATION
  Report Type: Report from Study
  Country: FR (occurrence: FR)
  Receive Date: 20131101
  Receipt Date: 20140121
  Transmission Date: 20141002
  Serious: Yes (Hospitalization, Other)
  Sender: FDA-Public Use
  Company Number: FR-JNJFOC-20131018914

PATIENT
  Age: 82 Year
  Sex: Female
  Weight: 67 kg

DRUGS (18)
  1. XARELTO [Suspect]
     Indication: EMBOLISM VENOUS
     Route: 048
     Dates: start: 20130513, end: 20130530
  2. XARELTO [Suspect]
     Indication: EMBOLISM VENOUS
     Route: 048
     Dates: start: 20130531, end: 20130813
  3. XARELTO [Suspect]
     Indication: DEEP VEIN THROMBOSIS
     Route: 048
     Dates: start: 20130531, end: 20130813
  4. XARELTO [Suspect]
     Indication: DEEP VEIN THROMBOSIS
     Route: 048
     Dates: start: 20130513, end: 20130530
  5. COUMADINE [Suspect]
     Indication: DEEP VEIN THROMBOSIS
     Route: 065
     Dates: start: 20130802, end: 20130804
  6. COUMADINE [Suspect]
     Indication: DEEP VEIN THROMBOSIS
     Route: 065
     Dates: start: 20130812, end: 20130828
  7. COUMADINE [Suspect]
     Indication: DEEP VEIN THROMBOSIS
     Route: 065
     Dates: start: 20130829, end: 20130910
  8. COUMADINE [Suspect]
     Indication: DEEP VEIN THROMBOSIS
     Route: 065
     Dates: start: 20130805, end: 20130808
  9. COUMADINE [Suspect]
     Indication: DEEP VEIN THROMBOSIS
     Route: 065
     Dates: start: 20130809, end: 20130811
  10. ATACAND [Concomitant]
     Route: 065
     Dates: start: 201012
  11. BISOPROLOL [Concomitant]
     Route: 065
     Dates: start: 2010
  12. ZOLPIDEM [Concomitant]
     Route: 065
     Dates: start: 1983
  13. LOXEN [Concomitant]
     Route: 065
     Dates: start: 20130513, end: 20130513
  14. DAFALGAN [Concomitant]
     Indication: PAIN
     Route: 065
     Dates: start: 20130512
  15. VELITEN [Concomitant]
     Route: 065
     Dates: start: 2003, end: 20130624
  16. NICARDIPINE [Concomitant]
     Route: 065
     Dates: start: 20130513, end: 20130513
  17. HEPARIN [Concomitant]
     Indication: DEEP VEIN THROMBOSIS
     Route: 065
     Dates: start: 20130912, end: 20131011
  18. HEPARIN [Concomitant]
     Indication: DEEP VEIN THROMBOSIS
     Route: 065
     Dates: start: 20130513, end: 20130513

REACTIONS (3)
  - Spontaneous haematoma [Not Recovered/Not Resolved]
  - Arthralgia [Not Recovered/Not Resolved]
  - Oedema peripheral [Not Recovered/Not Resolved]
